FAERS Safety Report 21709674 (Version 3)
Quarter: 2024Q1

REPORT INFORMATION
  Report Type: Report from Study
  Country: AU (occurrence: AU)
  Receive Date: 20221210
  Receipt Date: 20240102
  Transmission Date: 20240410
  Serious: Yes (Life-Threatening, Hospitalization, Disabling, Other)
  Sender: FDA-Public Use
  Company Number: AU-002147023-NVSC2022AU286965

PATIENT
  Age: 67 Year
  Sex: Female
  Weight: 123 kg

DRUGS (3)
  1. COSENTYX [Suspect]
     Active Substance: SECUKINUMAB
     Indication: Hidradenitis
     Dosage: UNK
     Route: 065
     Dates: start: 202206
  2. COSENTYX [Suspect]
     Active Substance: SECUKINUMAB
     Dosage: 300 MG, QMO
     Route: 058
     Dates: start: 20220823
  3. COSENTYX [Suspect]
     Active Substance: SECUKINUMAB
     Dosage: 300 MG, QMO
     Route: 058
     Dates: start: 20221021

REACTIONS (11)
  - Diabetic foot infection [Recovered/Resolved]
  - Pseudomonal bacteraemia [Recovered/Resolved]
  - Cardiac valve abscess [Recovered/Resolved]
  - Pulmonary embolism [Recovered/Resolved]
  - Deep vein thrombosis [Unknown]
  - Gastroenteritis [Recovered/Resolved]
  - Neuropathic arthropathy [Recovered/Resolved]
  - Sepsis [Unknown]
  - Septic shock [Unknown]
  - Leukocytosis [Unknown]
  - Infection [Unknown]

NARRATIVE: CASE EVENT DATE: 20221101
